FAERS Safety Report 7699143-9 (Version None)
Quarter: 2011Q3

REPORT INFORMATION
  Report Type: 
  Country: None (occurrence: None)
  Receive Date: 20110819
  Receipt Date: 20110811
  Transmission Date: 20111222
  Serious: No
  Sender: FDA-Public Use
  Company Number: US-BAYER-2011-072500

PATIENT
  Sex: Male
  Weight: 190 kg

DRUGS (3)
  1. BETASERON [Suspect]
     Indication: PRODUCT USED FOR UNKNOWN INDICATION
     Dosage: 0.3 MG, UNK
  2. ADVIL LIQUI-GELS [Concomitant]
     Indication: PRODUCT USED FOR UNKNOWN INDICATION
     Dosage: 200 MG UNK
  3. VITAMIN D [Concomitant]
     Dosage: 2000 IU, UNK

REACTIONS (1)
  - INJECTION SITE PAIN [None]
